FAERS Safety Report 7637194-0 (Version None)
Quarter: 2011Q3

REPORT INFORMATION
  Report Type: 
  Country: None (occurrence: None)
  Receive Date: 20110726
  Receipt Date: 20110712
  Transmission Date: 20111222
  Serious: Yes (Other)
  Sender: FDA-Public Use
  Company Number: PHHY2011US12402

PATIENT
  Sex: Female

DRUGS (5)
  1. TOPROL-XL [Suspect]
  2. DIOVAN HCT [Suspect]
     Dosage: 1 DF (160/25 MG) QD
     Dates: start: 20110101
  3. DIOVAN HCT [Suspect]
     Dates: start: 20101201
  4. ADVIL [Concomitant]
  5. ANTIHYPERTENSIVE DRUGS [Suspect]

REACTIONS (18)
  - HEADACHE [None]
  - STRESS [None]
  - PERIPHERAL COLDNESS [None]
  - RASH [None]
  - NASOPHARYNGITIS [None]
  - FATIGUE [None]
  - ERYTHEMA [None]
  - DYSPNOEA [None]
  - ALOPECIA [None]
  - HYPOAESTHESIA [None]
  - PARAESTHESIA [None]
  - FEELING ABNORMAL [None]
  - HYPERTENSION [None]
  - MALAISE [None]
  - COUGH [None]
  - DRY MOUTH [None]
  - CONTUSION [None]
  - INSOMNIA [None]
